FAERS Safety Report 8795535 (Version 2)
Quarter: 2015Q2

REPORT INFORMATION
  Report Type: Report from Study
  Country: US (occurrence: US)
  Receive Date: 20120917
  Receipt Date: 20150402
  Transmission Date: 20150821
  Serious: Yes (Death)
  Sender: FDA-Public Use
  Company Number: US-ROCHE-1128250

PATIENT
  Sex: Female

DRUGS (13)
  1. COMPAZINE [Concomitant]
     Active Substance: PROCHLORPERAZINE MALEATE
     Route: 042
  2. ATROPINE [Concomitant]
     Active Substance: ATROPINE
     Route: 042
  3. CEFTRIAXONE. [Concomitant]
     Active Substance: CEFTRIAXONE
     Route: 042
  4. CAMPTOSAR [Concomitant]
     Active Substance: IRINOTECAN HYDROCHLORIDE
     Route: 042
  5. ATIVAN [Concomitant]
     Active Substance: LORAZEPAM
     Route: 042
  6. DECADRON [Concomitant]
     Active Substance: DEXAMETHASONE
     Route: 065
  7. MORPHINE [Concomitant]
     Active Substance: MORPHINE
     Route: 042
  8. ANZEMET [Concomitant]
     Active Substance: DOLASETRON MESYLATE
     Route: 042
  9. GEMZAR [Concomitant]
     Active Substance: GEMCITABINE HYDROCHLORIDE
     Route: 042
  10. BENADRYL [Concomitant]
     Active Substance: DIPHENHYDRAMINE HYDROCHLORIDE
     Route: 042
  11. PEPCID [Concomitant]
     Active Substance: FAMOTIDINE
     Route: 042
  12. AVASTIN [Suspect]
     Active Substance: BEVACIZUMAB
     Indication: ANAL CANCER
     Route: 042
  13. OXALIPLATIN. [Concomitant]
     Active Substance: OXALIPLATIN
     Route: 042

REACTIONS (6)
  - Insomnia [Unknown]
  - Anxiety [Unknown]
  - Fatigue [Unknown]
  - Nausea [Unknown]
  - Somnolence [Unknown]
  - Death [Fatal]
